FAERS Safety Report 4658662-X (Version None)
Quarter: 2005Q2

REPORT INFORMATION
  Report Type: 
  Country: None (occurrence: None)
  Receive Date: 20050509
  Receipt Date: 20050509
  Transmission Date: 20051028
  Serious: No
  Sender: FDA-Public Use
  Company Number: None

PATIENT
  Sex: Female
  Weight: 94.3482 kg

DRUGS (4)
  1. TEGRETOL [Suspect]
     Indication: BIPOLAR DISORDER
     Dosage: PO 400 QD-}200 QD-}D/C
     Route: 048
     Dates: end: 20041230
  2. TEGRETOL [Suspect]
     Indication: MENTAL DISORDER
     Dosage: PO 400 QD-}200 QD-}D/C
     Route: 048
     Dates: end: 20041230
  3. PROZAC [Concomitant]
  4. ZYPREXA [Concomitant]

REACTIONS (1)
  - PANCYTOPENIA [None]
